FAERS Safety Report 24036609 (Version 2)
Quarter: 2024Q3

REPORT INFORMATION
  Report Type: Spontaneous
  Country: CN (occurrence: CN)
  Receive Date: 20240701
  Receipt Date: 20240704
  Transmission Date: 20241017
  Serious: Yes (Other)
  Sender: DAIICHI
  Company Number: CN-DSJP-DSJ-2024-129024

PATIENT
  Age: 33 Year
  Sex: Female
  Weight: 50 kg

DRUGS (4)
  1. TRASTUZUMAB DERUXTECAN [Suspect]
     Active Substance: TRASTUZUMAB DERUXTECAN
     Indication: Neoplasm malignant
     Dosage: 300 MG, ONCE EVERY 3 WK
     Route: 041
     Dates: start: 20240529, end: 20240529
  2. CATEQUENTINIB DIHYDROCHLORIDE [Suspect]
     Active Substance: CATEQUENTINIB DIHYDROCHLORIDE
     Indication: Breast cancer
     Dosage: 12 MG, QD
     Route: 048
     Dates: start: 20240531, end: 20240610
  3. NERATINIB MALEATE [Suspect]
     Active Substance: NERATINIB MALEATE
     Indication: Breast cancer
     Dosage: 240 MG, QD
     Route: 048
     Dates: start: 20240531, end: 20240610
  4. DEXTROSE [Concomitant]
     Active Substance: DEXTROSE\DEXTROSE MONOHYDRATE
     Indication: Vehicle solution use
     Dosage: 100 ML, ONCE EVERY 3 WK
     Route: 041
     Dates: start: 20240529, end: 20240529

REACTIONS (4)
  - Mucosal ulceration [Recovering/Resolving]
  - Oral disorder [Recovering/Resolving]
  - Hypophagia [Recovering/Resolving]
  - Tongue ulceration [Recovering/Resolving]

NARRATIVE: CASE EVENT DATE: 20240610
